FAERS Safety Report 10567153 (Version 4)
Quarter: 2015Q4

REPORT INFORMATION
  Report Type: Spontaneous
  Country: US (occurrence: US)
  Receive Date: 20141105
  Receipt Date: 20151002
  Transmission Date: 20160304
  Serious: Yes (Hospitalization)
  Sender: FDA-Public Use
  Company Number: US-ACTELION-A-NJ2014-107795

PATIENT
  Age: 74 Year
  Sex: Female

DRUGS (3)
  1. VIAGRA [Concomitant]
     Active Substance: SILDENAFIL CITRATE
     Dosage: UNK
  2. VENTAVIS [Suspect]
     Active Substance: ILOPROST
     Indication: PULMONARY ARTERIAL HYPERTENSION
     Dosage: 5 MCG, 6X/DAY
     Route: 055
     Dates: start: 20050805
  3. VENTAVIS [Suspect]
     Active Substance: ILOPROST
     Dosage: 5 MCG, 5-7X/DAY
     Route: 055

REACTIONS (8)
  - Haemoglobin decreased [Unknown]
  - Renal tubular necrosis [Recovering/Resolving]
  - Fluid retention [Recovering/Resolving]
  - Fluid overload [Recovering/Resolving]
  - Anaemia [Unknown]
  - Contrast media reaction [Recovering/Resolving]
  - Stoma site haemorrhage [Unknown]
  - Acute kidney injury [Recovering/Resolving]

NARRATIVE: CASE EVENT DATE: 20140918
